FAERS Safety Report 6705308-2 (Version None)
Quarter: 2010Q2

REPORT INFORMATION
  Report Type: 
  Country: None (occurrence: None)
  Receive Date: 20100430
  Receipt Date: 20100422
  Transmission Date: 20101027
  Serious: Yes (Death)
  Sender: FDA-Public Use
  Company Number: US-AMGEN-QUU408139

PATIENT
  Sex: Female
  Weight: 44.5 kg

DRUGS (1)
  1. NPLATE [Suspect]
     Indication: IDIOPATHIC THROMBOCYTOPENIC PURPURA
     Dates: start: 20100319, end: 20100319

REACTIONS (2)
  - LYMPHOMA [None]
  - MYOCARDIAL INFARCTION [None]
